FAERS Safety Report 8506034-X (Version None)
Quarter: 2012Q3

REPORT INFORMATION
  Report Type: 
  Country: None (occurrence: None)
  Receive Date: 20120712
  Receipt Date: 20120628
  Transmission Date: 20120928
  Serious: Yes (Death)
  Sender: FDA-Public Use
  Company Number: IT-CELGENEUS-083-21880-12063973

PATIENT
  Age: 73 Year
  Sex: Male

DRUGS (4)
  1. DEXAMETHASONE [Concomitant]
     Indication: MULTIPLE MYELOMA
     Dosage: 40 MILLIGRAM
     Route: 065
     Dates: start: 20110801, end: 20120401
  2. CYCLOPHOSPHAMIDE [Concomitant]
     Dosage: 500 MG/W
     Route: 048
     Dates: end: 20120401
  3. REVLIMID [Suspect]
     Indication: MULTIPLE MYELOMA
     Dosage: 10 MG/DIE
     Route: 048
     Dates: start: 20110801, end: 20120401
  4. CYCLOPHOSPHAMIDE [Concomitant]
     Indication: MULTIPLE MYELOMA
     Dosage: 500 MG/W
     Route: 041
     Dates: start: 20110801, end: 20120401

REACTIONS (1)
  - CARDIAC ARREST [None]
